FAERS Safety Report 6196769-9 (Version None)
Quarter: 2009Q2

REPORT INFORMATION
  Report Type: 
  Country: None (occurrence: None)
  Receive Date: 20090519
  Receipt Date: 20090519
  Transmission Date: 20091009
  Serious: Yes (Disabling)
  Sender: FDA-Public Use
  Company Number: None

PATIENT
  Age: 3 Year
  Sex: Male
  Weight: 20.4119 kg

DRUGS (1)
  1. RISPERIDONE [Suspect]
     Indication: AGGRESSION
     Dosage: .5MG 2 TIMES A DAY PO
     Route: 048
     Dates: start: 20090413, end: 20090501

REACTIONS (3)
  - CONFUSIONAL STATE [None]
  - DYSPHEMIA [None]
  - PRODUCT SUBSTITUTION ISSUE [None]
